FAERS Safety Report 7148542-2 (Version None)
Quarter: 2010Q4

REPORT INFORMATION
  Report Type: 
  Country: None (occurrence: None)
  Receive Date: 20101209
  Receipt Date: 20101202
  Transmission Date: 20110411
  Serious: Yes (Hospitalization)
  Sender: FDA-Public Use
  Company Number: JP-BRISTOL-MYERS SQUIBB COMPANY-15338098

PATIENT
  Age: 46 Year
  Sex: Female

DRUGS (7)
  1. REYATAZ [Suspect]
     Indication: HIV INFECTION
     Route: 048
     Dates: start: 20051117, end: 20090722
  2. NORVIR [Suspect]
     Indication: HIV INFECTION
     Dosage: 17NOV05-22JUL09,21OCT09-ONGOING.CAPSULE
     Route: 048
     Dates: start: 20051117
  3. EPZICOM [Suspect]
     Indication: HIV INFECTION
     Dosage: 1DF=1TABLET.1APR05-22JUL09,21OCT09-ONGOING
     Route: 048
     Dates: start: 20050401
  4. ALDACTONE [Concomitant]
     Indication: CARDIAC FAILURE
  5. BLOPRESS [Concomitant]
     Indication: CARDIAC FAILURE
     Dosage: TABLET
     Route: 048
  6. MYSLEE [Concomitant]
     Dosage: TABLET
     Route: 048
     Dates: end: 20090729
  7. LEXIVA [Concomitant]
     Indication: HIV INFECTION
     Dosage: LEXIVA TAB
     Route: 048
     Dates: start: 20091021

REACTIONS (2)
  - CHOLELITHIASIS [None]
  - PYELONEPHRITIS [None]
